FAERS Safety Report 12483239 (Version 1)
Quarter: 2016Q2

REPORT INFORMATION
  Report Type: Spontaneous
  Country: AU (occurrence: AU)
  Receive Date: 20160621
  Receipt Date: 20160621
  Transmission Date: 20160815
  Serious: Yes (Hospitalization, Other)
  Sender: FDA-Public Use
  Company Number: AU-ACTELION-A-CH2016-137506

PATIENT
  Age: 56 Year
  Sex: Female
  Weight: 76 kg

DRUGS (4)
  1. OPSUMIT [Suspect]
     Active Substance: MACITENTAN
     Indication: PULMONARY ARTERIAL HYPERTENSION
     Dosage: 10 MG, OD
     Route: 048
     Dates: start: 20160122, end: 20160607
  2. FRUSEMIDE [Concomitant]
     Active Substance: FUROSEMIDE
     Indication: PULMONARY ARTERIAL HYPERTENSION
     Dosage: 80 MG, BID
     Route: 048
     Dates: start: 20151219
  3. SILDENAFIL. [Concomitant]
     Active Substance: SILDENAFIL
     Indication: PULMONARY ARTERIAL HYPERTENSION
     Dosage: 25 MG, BID
     Route: 048
     Dates: start: 20160127
  4. SPIRONOLACTONE. [Concomitant]
     Active Substance: SPIRONOLACTONE
     Indication: PULMONARY ARTERIAL HYPERTENSION
     Dosage: 25 MG, BID
     Route: 048
     Dates: start: 20160217

REACTIONS (15)
  - Gastrointestinal haemorrhage [Unknown]
  - Mallory-Weiss syndrome [Unknown]
  - Abdominal discomfort [Unknown]
  - Anaemia [Unknown]
  - Hypotension [Unknown]
  - Melaena [Unknown]
  - Dizziness [Unknown]
  - Urinary tract infection [Unknown]
  - Diarrhoea [Unknown]
  - Haemoglobin decreased [Unknown]
  - Nausea [Unknown]
  - Transfusion [Unknown]
  - Haematemesis [Unknown]
  - Oesophageal varices haemorrhage [Unknown]
  - Fatigue [Unknown]

NARRATIVE: CASE EVENT DATE: 20160604
